FAERS Safety Report 4765169-8 (Version None)
Quarter: 2005Q3

REPORT INFORMATION
  Report Type: 
  Country: None (occurrence: None)
  Receive Date: 20050909
  Receipt Date: 20050901
  Transmission Date: 20060218
  Serious: Yes (Hospitalization, Other)
  Sender: FDA-Public Use
  Company Number: FR-ABBOTT-05P-056-0310144-00

PATIENT
  Sex: Male
  Weight: 1.58 kg

DRUGS (8)
  1. KALETRA [Suspect]
     Indication: DRUG EXPOSURE DURING PREGNANCY
  2. LAMIVUDINE + ZIDOVUDINE [Suspect]
     Indication: DRUG EXPOSURE DURING PREGNANCY
  3. TRIZIVIR [Suspect]
     Indication: DRUG EXPOSURE DURING PREGNANCY
  4. ZIDOVUDINE [Suspect]
     Indication: PROPHYLAXIS AGAINST HIV INFECTION
     Route: 042
     Dates: start: 20050722, end: 20050729
  5. AMOXICILLIN [Concomitant]
     Indication: DRUG EXPOSURE DURING PREGNANCY
     Route: 048
     Dates: start: 20050401
  6. BETHAMETASON [Concomitant]
     Indication: DRUG EXPOSURE DURING PREGNANCY
     Route: 065
     Dates: start: 20050722, end: 20050722
  7. CEFOTAXIM [Concomitant]
     Indication: NECROTISING COLITIS
     Route: 042
     Dates: start: 20050729
  8. VANCOMYCIN [Concomitant]
     Indication: NECROTISING COLITIS
     Route: 042
     Dates: start: 20050729

REACTIONS (7)
  - ANAEMIA [None]
  - ENTERITIS [None]
  - FOETAL GROWTH RETARDATION [None]
  - GASTROINTESTINAL DISORDER [None]
  - PREMATURE LABOUR [None]
  - RESPIRATORY DISTRESS [None]
  - STAPHYLOCOCCAL INFECTION [None]
